FAERS Safety Report 24124991 (Version 6)
Quarter: 2025Q1

REPORT INFORMATION
  Report Type: Report from Study
  Country: US (occurrence: US)
  Receive Date: 20240723
  Receipt Date: 20250123
  Transmission Date: 20250409
  Serious: No
  Sender: DECIPHERA PHARMACEUTICALS
  Company Number: US-DECIPHERA PHARMACEUTICALS LLC-2024US000613

PATIENT
  Age: 54 Year
  Sex: Female

DRUGS (3)
  1. QINLOCK [Suspect]
     Active Substance: RIPRETINIB
     Indication: Gastrointestinal stromal tumour
     Dosage: 150 MILLIGRAM, QD
     Route: 048
     Dates: start: 20240618
  2. QINLOCK [Suspect]
     Active Substance: RIPRETINIB
     Dosage: 100 MILLIGRAM, QD
     Route: 048
     Dates: start: 2024, end: 2024
  3. QINLOCK [Suspect]
     Active Substance: RIPRETINIB
     Dosage: 100 MILLIGRAM, QD
     Route: 048
     Dates: start: 2024

REACTIONS (22)
  - Burning sensation [Unknown]
  - Skin exfoliation [Recovering/Resolving]
  - Tongue atrophy [Recovering/Resolving]
  - Pain in extremity [Unknown]
  - Photosensitivity reaction [Unknown]
  - Decreased appetite [Unknown]
  - Hypersomnia [Unknown]
  - Neoplasm progression [Unknown]
  - Cognitive disorder [Unknown]
  - Amnesia [Unknown]
  - Fall [Unknown]
  - Skin atrophy [Unknown]
  - Taste disorder [Unknown]
  - Blood test abnormal [Unknown]
  - Depression [Unknown]
  - Dry skin [Unknown]
  - Vomiting [Unknown]
  - Alopecia [Unknown]
  - Myalgia [Unknown]
  - Hypertension [Unknown]
  - Fatigue [Unknown]
  - Nausea [Unknown]

NARRATIVE: CASE EVENT DATE: 20240101
